FAERS Safety Report 11913919 (Version 1)
Quarter: 2016Q1

REPORT INFORMATION
  Report Type: Spontaneous
  Country: SA (occurrence: SA)
  Receive Date: 20160113
  Receipt Date: 20160113
  Transmission Date: 20160526
  Serious: Yes (Death, Life-Threatening)
  Sender: FDA-Public Use
  Company Number: SA-ABBVIE-16P-259-1534999-00

PATIENT

DRUGS (1)
  1. SURVANTA [Suspect]
     Active Substance: BERACTANT
     Indication: ACUTE RESPIRATORY DISTRESS SYNDROME
     Dosage: 4 ML/KG
     Route: 065

REACTIONS (1)
  - Pulmonary haemorrhage [Fatal]
